FAERS Safety Report 25644366 (Version 1)
Quarter: 2025Q3

REPORT INFORMATION
  Report Type: Spontaneous
  Country: US (occurrence: None)
  Receive Date: 20250803
  Receipt Date: 20250803
  Transmission Date: 20251021
  Serious: No
  Sender: FDA-CTU
  Company Number: None

PATIENT

DRUGS (1)
  1. 7-HYDROXYMITRAGYNINE [Suspect]
     Active Substance: 7-HYDROXYMITRAGYNINE
     Indication: Substance use
     Route: 050
     Dates: start: 20250802, end: 20250802

REACTIONS (7)
  - Body temperature increased [None]
  - Hyperhidrosis [None]
  - Dizziness [None]
  - Nausea [None]
  - Vomiting [None]
  - Lethargy [None]
  - Headache [None]

NARRATIVE: CASE EVENT DATE: 20250802
